FAERS Safety Report 5190165-9 (Version None)
Quarter: 2006Q4

REPORT INFORMATION
  Report Type: 
  Country: None (occurrence: None)
  Receive Date: 20061222
  Receipt Date: 20061213
  Transmission Date: 20070319
  Serious: Yes (Hospitalization, Other)
  Sender: FDA-Public Use
  Company Number: US-NOVOPROD-259220

PATIENT
  Age: 61 Year
  Sex: Female
  Weight: 75.283 kg

DRUGS (14)
  1. NOVOLOG [Suspect]
     Indication: INSULIN-REQUIRING TYPE II DIABETES MELLITUS
     Dosage: UNKNOWN
     Route: 058
  2. HUMALOG [Concomitant]
     Indication: INSULIN-REQUIRING TYPE II DIABETES MELLITUS
     Route: 058
  3. LANTUS [Concomitant]
     Route: 058
  4. LOPRESSOR [Concomitant]
     Indication: ILL-DEFINED DISORDER
  5. MICETAL [Concomitant]
     Indication: ILL-DEFINED DISORDER
  6. POTASSIUM ACETATE [Concomitant]
     Indication: ILL-DEFINED DISORDER
  7. PLAVIX [Concomitant]
     Indication: ILL-DEFINED DISORDER
  8. PROTONIX                           /01263201/ [Concomitant]
     Indication: ILL-DEFINED DISORDER
  9. COZAAR [Concomitant]
     Indication: ILL-DEFINED DISORDER
  10. IMDUR [Concomitant]
     Indication: ILL-DEFINED DISORDER
  11. LIPITOR [Concomitant]
     Indication: ILL-DEFINED DISORDER
  12. ASPIRIN [Concomitant]
     Indication: ILL-DEFINED DISORDER
  13. FOSAMAX [Concomitant]
     Indication: ILL-DEFINED DISORDER
  14. KLONOPIN [Concomitant]
     Indication: ILL-DEFINED DISORDER

REACTIONS (2)
  - CEREBROVASCULAR ACCIDENT [None]
  - CONVULSION [None]
